FAERS Safety Report 15823660 (Version 5)
Quarter: 2019Q2

REPORT INFORMATION
  Report Type: Spontaneous
  Country: US (occurrence: US)
  Receive Date: 20190114
  Receipt Date: 20190507
  Transmission Date: 20190711
  Serious: No
  Sender: FDA-Public Use
  Company Number: US-ACTELION-A-NJ2018-183417

PATIENT
  Age: 77 Year
  Sex: Female
  Weight: 133.79 kg

DRUGS (4)
  1. OXYGEN. [Concomitant]
     Active Substance: OXYGEN
  2. OPSUMIT [Suspect]
     Active Substance: MACITENTAN
     Indication: PULMONARY ARTERIAL HYPERTENSION
     Dosage: 10 MG, QD
     Route: 048
     Dates: start: 20181126, end: 201903
  3. ORENITRAM [Concomitant]
     Active Substance: TREPROSTINIL
  4. AMLODIPINE [Concomitant]
     Active Substance: AMLODIPINE BESYLATE

REACTIONS (21)
  - Abdominal discomfort [Unknown]
  - Nausea [Unknown]
  - Dyspnoea [Unknown]
  - Malaise [Unknown]
  - Rhinorrhoea [Unknown]
  - Gait disturbance [Unknown]
  - Nasal congestion [Unknown]
  - Dyspnoea exertional [Unknown]
  - Oxygen saturation decreased [Unknown]
  - Tooth extraction [Unknown]
  - Productive cough [Unknown]
  - Therapy non-responder [Unknown]
  - Influenza like illness [Unknown]
  - Insomnia [Unknown]
  - Decreased appetite [Unknown]
  - Unevaluable event [Unknown]
  - Eating disorder [Unknown]
  - Asthenia [Unknown]
  - Nasopharyngitis [Unknown]
  - Headache [Unknown]
  - Fatigue [Unknown]

NARRATIVE: CASE EVENT DATE: 20190311
